FAERS Safety Report 5955032-9 (Version None)
Quarter: 2008Q4

REPORT INFORMATION
  Report Type: 
  Country: None (occurrence: None)
  Receive Date: 20081117
  Receipt Date: 20081110
  Transmission Date: 20090506
  Serious: Yes (Congenital Anomaly)
  Sender: FDA-Public Use
  Company Number: A0756639A

PATIENT

DRUGS (1)
  1. PAXIL [Suspect]
     Indication: DEPRESSION

REACTIONS (3)
  - ATRIAL SEPTAL DEFECT [None]
  - CONGENITAL ANOMALY [None]
  - DRUG EXPOSURE DURING PREGNANCY [None]
